FAERS Safety Report 8796738 (Version 1)
Quarter: 2012Q4

REPORT INFORMATION
  Report Type: 
  Country: US (occurrence: US)
  Receive Date: 20120919
  Receipt Date: 20120919
  Transmission Date: 20130627
  Serious: Yes (Death, Hospitalization)
  Sender: FDA-Public Use
  Company Number: US-GILEAD-2012-0061498

PATIENT
  Age: 34 Year
  Sex: Male

DRUGS (3)
  1. ATRIPLA [Suspect]
     Indication: HIV INFECTION
     Dosage: 1 DF, UNK
  2. ISENTRESS [Suspect]
     Indication: HIV INFECTION
     Dosage: 400 mg, BID
     Route: 048
  3. EMPRINE [Concomitant]

REACTIONS (2)
  - Death [Fatal]
  - Kaposi^s sarcoma [Unknown]
